FAERS Safety Report 23091493 (Version 1)
Quarter: 2023Q4

REPORT INFORMATION
  Report Type: Spontaneous
  Country: US (occurrence: US)
  Receive Date: 20231020
  Receipt Date: 20231020
  Transmission Date: 20240110
  Serious: Yes (Other)
  Sender: FDA-Public Use
  Company Number: US-BRISTOL-MYERS SQUIBB COMPANY-2023-145545

PATIENT
  Age: 89 Year
  Sex: Female

DRUGS (1)
  1. LENALIDOMIDE [Suspect]
     Active Substance: LENALIDOMIDE
     Indication: 5q minus syndrome
     Dosage: TAKE 1 WHOLE CAPSULE BY MOUTH WITH WATER W/ OR W/O FOOD AT THE SAME TIME EVERY DAY FOR 21 DAYS OF A
     Route: 048

REACTIONS (7)
  - Pneumonia [Unknown]
  - Gait disturbance [Unknown]
  - Constipation [Unknown]
  - Pulmonary oedema [Unknown]
  - Fatigue [Unknown]
  - Asthenia [Recovering/Resolving]
  - Dyspnoea [Unknown]
